FAERS Safety Report 23520203 (Version 1)
Quarter: 2024Q1

REPORT INFORMATION
  Report Type: 
  Country: None (occurrence: None)
  Receive Date: 20240214
  Receipt Date: 20240214
  Transmission Date: 20240410
  Serious: No
  Sender: FDA-Public Use
  Company Number: DE-ROCHE-3438021

PATIENT

DRUGS (12)
  1. GLOFITAMAB [Suspect]
     Active Substance: GLOFITAMAB
     Dosage: D8?ON 20/JAN/2024, SHE RECEIVED DOSE OF GLOFITAMAB.
     Dates: start: 20231006
  2. GLOFITAMAB [Suspect]
     Active Substance: GLOFITAMAB
     Dosage: D16
     Dates: start: 20231014
  3. GLOFITAMAB [Suspect]
     Active Substance: GLOFITAMAB
     Dates: start: 20231029
  4. POLATUZUMAB VEDOTIN [Suspect]
     Active Substance: POLATUZUMAB VEDOTIN
     Dosage: ON 19/JAN/2024, SHE RECEIVED DOSE OF POLATUZUMAB VEDOTIN
     Dates: start: 20231001
  5. POLATUZUMAB VEDOTIN [Suspect]
     Active Substance: POLATUZUMAB VEDOTIN
     Dates: start: 20231028
  6. OBINUTUZUMAB [Suspect]
     Active Substance: OBINUTUZUMAB
     Dates: start: 20230929
  7. OBINUTUZUMAB [Suspect]
     Active Substance: OBINUTUZUMAB
     Dates: start: 20230930
  8. RITUXIMAB [Suspect]
     Active Substance: RITUXIMAB
     Dosage: ON 19/JAN/2024, SHE RECEIVED RITUXIMAB DOSE.
     Dates: start: 20231028
  9. CALCIUM CHLORIDE\MAGNESIUM CHLORIDE\POTASSIUM CHLORIDE\SODIUM ACETATE\ [Concomitant]
     Active Substance: CALCIUM CHLORIDE\MAGNESIUM CHLORIDE\POTASSIUM CHLORIDE\SODIUM ACETATE\SODIUM CHLORIDE
     Dates: start: 20231013, end: 20231013
  10. PANTOZOL [Concomitant]
     Active Substance: PANTOPRAZOLE SODIUM
  11. PANTOZOL [Concomitant]
     Active Substance: PANTOPRAZOLE SODIUM
  12. DIFLUCAN [Concomitant]
     Active Substance: FLUCONAZOLE

REACTIONS (4)
  - Cytokine release syndrome [None]
  - Blood creatinine increased [None]
  - Dyspepsia [None]
  - Cytokine release syndrome [None]

NARRATIVE: CASE EVENT DATE: 20231007
